FAERS Safety Report 14224138 (Version 2)
Quarter: 2017Q4

REPORT INFORMATION
  Report Type: Report from Study
  Country: US (occurrence: US)
  Receive Date: 20171126
  Receipt Date: 20171204
  Transmission Date: 20180321
  Serious: Yes (Life-Threatening, Other)
  Sender: FDA-Public Use
  Company Number: US-TESARO, INC-US-2017TSO04069

PATIENT

DRUGS (1)
  1. ZEJULA [Suspect]
     Active Substance: NIRAPARIB
     Indication: MALIGNANT PERITONEAL NEOPLASM
     Dosage: 3 DF, QD
     Route: 048
     Dates: start: 20170830

REACTIONS (10)
  - Loss of personal independence in daily activities [Unknown]
  - Stress at work [Unknown]
  - Oedema peripheral [Recovered/Resolved]
  - Dizziness [Unknown]
  - Cellulitis [Recovered/Resolved]
  - Blood pressure increased [Unknown]
  - Paraesthesia [Unknown]
  - White blood cell count decreased [Unknown]
  - Nasopharyngitis [Recovering/Resolving]
  - Photopsia [Unknown]
